FAERS Safety Report 18309699 (Version 2)
Quarter: 2022Q3

REPORT INFORMATION
  Report Type: Spontaneous
  Country: US (occurrence: US)
  Receive Date: 20200925
  Receipt Date: 20220701
  Transmission Date: 20221026
  Serious: Yes (Other)
  Sender: FDA-Public Use
  Company Number: US-SAARTEMIS-SAC202009220628

PATIENT
  Age: 47 Year
  Sex: Male

DRUGS (1)
  1. ZANTAC [Suspect]
     Active Substance: RANITIDINE HYDROCHLORIDE
     Indication: Hyperchlorhydria
     Dosage: UNK, QD
     Dates: start: 200701, end: 201212

REACTIONS (1)
  - Prostate cancer stage I [Unknown]

NARRATIVE: CASE EVENT DATE: 20090824
